FAERS Safety Report 4785400-2 (Version None)
Quarter: 2005Q4

REPORT INFORMATION
  Report Type: 
  Country: None (occurrence: None)
  Receive Date: 20051003
  Receipt Date: 20041026
  Transmission Date: 20060501
  Serious: Yes (Other)
  Sender: FDA-Public Use
  Company Number: PHBS2004IL14240

PATIENT
  Age: 58 Year
  Sex: Female

DRUGS (2)
  1. AREDIA [Suspect]
     Indication: MULTIPLE MYELOMA
     Dosage: 90 MG
     Route: 042
     Dates: start: 20031001, end: 20040801
  2. FEMARA [Concomitant]
     Route: 065

REACTIONS (2)
  - OSTEOMYELITIS [None]
  - PAIN IN JAW [None]
